FAERS Safety Report 4462627-0 (Version None)
Quarter: 2004Q3

REPORT INFORMATION
  Report Type: 
  Country: None (occurrence: None)
  Receive Date: 20040929
  Receipt Date: 20040914
  Transmission Date: 20050211
  Serious: Yes (Death)
  Sender: FDA-Public Use
  Company Number: AZAUS200400098

PATIENT
  Age: 73 Year
  Sex: Male
  Weight: 62 kg

DRUGS (4)
  1. VIDAZA [Suspect]
     Indication: MYELODYSPLASTIC SYNDROME
     Dosage: (185 MG , DAILY X 5 DAYS), SUBCUTANEOUS
     Route: 058
     Dates: start: 20040823, end: 20040827
  2. MEGACE [Concomitant]
  3. COMPAZINE [Concomitant]
  4. ALLOPURINOL [Concomitant]

REACTIONS (1)
  - DEATH [None]
